FAERS Safety Report 8796884 (Version 2)
Quarter: 2015Q2

REPORT INFORMATION
  Report Type: Report from Study
  Country: US (occurrence: US)
  Receive Date: 20120917
  Receipt Date: 20150402
  Transmission Date: 20150821
  Serious: Yes (Death)
  Sender: FDA-Public Use
  Company Number: US-ROCHE-1128239

PATIENT
  Sex: Female

DRUGS (38)
  1. TARCEVA [Suspect]
     Active Substance: ERLOTINIB HYDROCHLORIDE
     Indication: BREAST CANCER
     Route: 048
  2. COUMADIN [Concomitant]
     Active Substance: WARFARIN SODIUM
     Route: 048
  3. COUMADIN [Concomitant]
     Active Substance: WARFARIN SODIUM
     Route: 048
  4. COUMADIN [Concomitant]
     Active Substance: WARFARIN SODIUM
     Route: 048
  5. BENADRYL [Concomitant]
     Active Substance: DIPHENHYDRAMINE HYDROCHLORIDE
     Route: 042
  6. HEPARIN [Concomitant]
     Active Substance: HEPARIN SODIUM
     Route: 065
  7. AVASTIN [Suspect]
     Active Substance: BEVACIZUMAB
     Indication: GALLBLADDER CANCER
  8. PEGFILGRASTIM [Concomitant]
     Active Substance: PEGFILGRASTIM
     Route: 058
  9. COUMADIN [Concomitant]
     Active Substance: WARFARIN SODIUM
     Route: 048
  10. BENADRYL [Concomitant]
     Active Substance: DIPHENHYDRAMINE HYDROCHLORIDE
     Route: 042
  11. SULFAMETHOXAZOLE/TRIMETHOPRIM [Concomitant]
     Active Substance: SULFAMETHOXAZOLE\TRIMETHOPRIM
     Route: 065
  12. TAXOTERE [Concomitant]
     Active Substance: DOCETAXEL
     Route: 065
  13. VITAMIN K [Concomitant]
     Active Substance: PHYTONADIONE
     Route: 065
  14. LOVENOX [Concomitant]
     Active Substance: ENOXAPARIN SODIUM
     Route: 058
  15. PROCRIT [Concomitant]
     Active Substance: ERYTHROPOIETIN
     Route: 058
  16. DECADRON [Concomitant]
     Active Substance: DEXAMETHASONE
     Route: 042
  17. COUMADIN [Concomitant]
     Active Substance: WARFARIN SODIUM
     Route: 048
  18. TAXOTERE [Concomitant]
     Active Substance: DOCETAXEL
     Route: 065
  19. PROCRIT [Concomitant]
     Active Substance: ERYTHROPOIETIN
     Route: 058
  20. ARANESP [Concomitant]
     Active Substance: DARBEPOETIN ALFA
     Route: 065
  21. COMPAZINE [Concomitant]
     Active Substance: PROCHLORPERAZINE MALEATE
  22. GEMZAR [Concomitant]
     Active Substance: GEMCITABINE HYDROCHLORIDE
     Dosage: 1400 MG; 1500 ,G; 1600 MG; 1700 MG; 1800 MG; 1870 MG; 2200 MG
     Route: 042
  23. TYLENOL [Concomitant]
     Active Substance: ACETAMINOPHEN
     Route: 048
  24. CARBOPLATIN. [Concomitant]
     Active Substance: CARBOPLATIN
     Route: 065
  25. ZOFRAN [Concomitant]
     Active Substance: ONDANSETRON HYDROCHLORIDE
     Route: 048
  26. ARANESP [Concomitant]
     Active Substance: DARBEPOETIN ALFA
     Route: 065
  27. LOVENOX [Concomitant]
     Active Substance: ENOXAPARIN SODIUM
     Route: 058
  28. AVASTIN [Suspect]
     Active Substance: BEVACIZUMAB
     Indication: BREAST CANCER
     Dosage: 250 MG; 375 MG; 385 MG; 400 MG; 450 MG; 600 MG; 830 ,G; 835 MG; 850 MG; 865 MG
     Route: 042
  29. FILGRASTIM [Concomitant]
     Active Substance: FILGRASTIM
     Route: 065
  30. PROCRIT [Concomitant]
     Active Substance: ERYTHROPOIETIN
     Route: 058
  31. ALOXI [Concomitant]
     Active Substance: PALONOSETRON HYDROCHLORIDE
     Route: 042
  32. ARANESP [Concomitant]
     Active Substance: DARBEPOETIN ALFA
     Route: 065
  33. DEXAMETHASONE. [Concomitant]
     Active Substance: DEXAMETHASONE
     Route: 065
  34. TARCEVA [Suspect]
     Active Substance: ERLOTINIB HYDROCHLORIDE
     Route: 048
  35. DECADRON [Concomitant]
     Active Substance: DEXAMETHASONE
     Route: 042
  36. LASIX [Concomitant]
     Active Substance: FUROSEMIDE
     Route: 042
  37. CARBOPLATIN. [Concomitant]
     Active Substance: CARBOPLATIN
     Route: 065
  38. ZOFRAN [Concomitant]
     Active Substance: ONDANSETRON HYDROCHLORIDE
     Route: 048

REACTIONS (12)
  - Dizziness [Unknown]
  - Dysuria [Unknown]
  - Erythema [Unknown]
  - Vomiting [Unknown]
  - Death [Fatal]
  - Anxiety [Unknown]
  - Pain in extremity [Unknown]
  - Epistaxis [Unknown]
  - Asthenia [Unknown]
  - Haemoptysis [Unknown]
  - Feeling cold [Unknown]
  - Abdominal pain [Unknown]
